FAERS Safety Report 12565395 (Version 3)
Quarter: 2016Q4

REPORT INFORMATION
  Report Type: Spontaneous
  Country: FR (occurrence: FR)
  Receive Date: 20160718
  Receipt Date: 20161017
  Transmission Date: 20170207
  Serious: Yes (Other)
  Sender: FDA-Public Use
  Company Number: PHHY2016FR094716

PATIENT
  Age: 4 Year
  Sex: Male

DRUGS (10)
  1. HYPNOVEL [Suspect]
     Active Substance: MIDAZOLAM\MIDAZOLAM HYDROCHLORIDE
     Indication: PRODUCT USED FOR UNKNOWN INDICATION
     Route: 065
  2. VANCOMYCIN SANDOZ [Suspect]
     Active Substance: VANCOMYCIN
     Indication: DEVICE RELATED SEPSIS
     Dosage: 15 MG/KG, QD
     Route: 042
     Dates: start: 20160614, end: 20160615
  3. PIPERACILLIN AND TAZOBACTAM [Suspect]
     Active Substance: PIPERACILLIN SODIUM\TAZOBACTAM SODIUM
     Indication: DEVICE RELATED SEPSIS
     Dosage: 300 MG/KG, QD
     Route: 042
     Dates: start: 20160612, end: 20160616
  4. GARDENAL//PHENOBARBITAL [Suspect]
     Active Substance: PHENOBARBITAL
     Indication: STATUS EPILEPTICUS
     Dosage: 5 MG/KG, QD
     Route: 042
     Dates: start: 20160529, end: 20160606
  5. KEPPRA [Suspect]
     Active Substance: LEVETIRACETAM
     Indication: PRODUCT USED FOR UNKNOWN INDICATION
     Route: 065
  6. PARACETAMOL G GAM [Suspect]
     Active Substance: ACETAMINOPHEN
     Indication: HYPERTHERMIA
     Route: 042
     Dates: start: 20160529
  7. SUFENTANIL [Suspect]
     Active Substance: SUFENTANIL
     Indication: PRODUCT USED FOR UNKNOWN INDICATION
     Dosage: UNK
     Route: 065
  8. GENTAMICINE PANPHARMA [Suspect]
     Active Substance: GENTAMICIN
     Indication: DEVICE RELATED SEPSIS
     Dosage: 5 MG/KG, QD
     Route: 042
     Dates: start: 20160612, end: 20160616
  9. THIOPENTAL ROTEXMEDICA [Suspect]
     Active Substance: THIOPENTAL
     Indication: ENDOTRACHEAL INTUBATION
     Dosage: 3 MG/KG, QH
     Route: 042
     Dates: start: 20160606, end: 20160618
  10. SMOFLIPID [Suspect]
     Active Substance: FISH OIL\MEDIUM-CHAIN TRIGLYCERIDES\OLIVE OIL\SOYBEAN OIL
     Indication: PARENTERAL NUTRITION
     Dosage: 150 ML, QD
     Route: 042
     Dates: start: 20160614, end: 20160617

REACTIONS (8)
  - Hyperlipasaemia [Unknown]
  - Encephalitis [Unknown]
  - Hepatocellular injury [Recovered/Resolved]
  - Rash [Unknown]
  - Prothrombin time shortened [Recovered/Resolved]
  - Hypoalbuminaemia [Unknown]
  - Hypertriglyceridaemia [Unknown]
  - Agranulocytosis [Recovered/Resolved]

NARRATIVE: CASE EVENT DATE: 2016
